FAERS Safety Report 23388920 (Version 2)
Quarter: 2024Q1

REPORT INFORMATION
  Report Type: Spontaneous
  Country: US (occurrence: US)
  Receive Date: 20240110
  Receipt Date: 20240201
  Transmission Date: 20240409
  Serious: No
  Sender: FDA-Public Use
  Company Number: US-DRL-USA-SPO/USA/24/0000355

PATIENT
  Age: 23 Year
  Sex: Female

DRUGS (1)
  1. ACCUTANE [Suspect]
     Active Substance: ISOTRETINOIN
     Indication: Product used for unknown indication
     Dates: start: 20230701, end: 20231225

REACTIONS (4)
  - Product dose omission issue [Unknown]
  - Alopecia [Unknown]
  - Dry skin [Unknown]
  - Epistaxis [Unknown]

NARRATIVE: CASE EVENT DATE: 20231226
